FAERS Safety Report 8972992 (Version 1)
Quarter: 2012Q4

REPORT INFORMATION
  Report Type: 
  Country: US (occurrence: US)
  Receive Date: 20121218
  Receipt Date: 20121218
  Transmission Date: 20130627
  Serious: No
  Sender: FDA-Public Use
  Company Number: US-BRISTOL-MYERS SQUIBB COMPANY-16467540

PATIENT
  Age: 10 Year
  Sex: Male

DRUGS (1)
  1. ABILIFY TABS 5 MG [Suspect]
     Dosage: Abilify 2 mg for a few weeks.

REACTIONS (2)
  - Drug ineffective [Unknown]
  - Tooth loss [Unknown]
